FAERS Safety Report 7086310-0 (Version None)
Quarter: 2010Q4

REPORT INFORMATION
  Report Type: 
  Country: None (occurrence: None)
  Receive Date: 20101105
  Receipt Date: 20101025
  Transmission Date: 20110411
  Serious: Yes (Hospitalization, Other)
  Sender: FDA-Public Use
  Company Number: US-ELI_LILLY_AND_COMPANY-US201010006400

PATIENT
  Sex: Female

DRUGS (4)
  1. CYMBALTA [Suspect]
     Dosage: 60 MG, DAILY (1/D)
     Route: 065
  2. RISPERDAL [Concomitant]
     Dosage: UNK, UNKNOWN
     Route: 065
  3. SOMA [Concomitant]
     Dosage: UNK, UNKNOWN
     Route: 065
  4. PERCOCET [Concomitant]
     Dosage: UNK, UNKNOWN
     Route: 065

REACTIONS (7)
  - BLADDER DISORDER [None]
  - CYSTITIS [None]
  - HEPATIC INFECTION [None]
  - HEPATITIS C [None]
  - KIDNEY INFECTION [None]
  - LIVER INJURY [None]
  - RENAL DISORDER [None]
